FAERS Safety Report 14718661 (Version 2)
Quarter: 2018Q4

REPORT INFORMATION
  Report Type: Spontaneous
  Country: ES (occurrence: ES)
  Receive Date: 20180405
  Receipt Date: 20181119
  Transmission Date: 20190204
  Serious: Yes (Hospitalization, Other)
  Sender: FDA-Public Use
  Company Number: ES-B.I. PHARMACEUTICALS,INC./RIDGEFIELD-2018-BI-018429

PATIENT
  Age: 4 Decade
  Sex: Female

DRUGS (3)
  1. BASAL-H-INSULIN [Concomitant]
     Indication: TYPE 1 DIABETES MELLITUS
     Route: 065
  2. BASAL-H-INSULIN [Concomitant]
     Route: 065
  3. JARDIANCE [Suspect]
     Active Substance: EMPAGLIFLOZIN
     Indication: TYPE 1 DIABETES MELLITUS
     Route: 065

REACTIONS (3)
  - Product use in unapproved indication [Unknown]
  - Diabetic ketoacidosis [Recovered/Resolved]
  - Myocardial ischaemia [Recovered/Resolved]
